FAERS Safety Report 8426887-3 (Version None)
Quarter: 2012Q2

REPORT INFORMATION
  Report Type: 
  Country: None (occurrence: None)
  Receive Date: 20120531
  Receipt Date: 20120522
  Transmission Date: 20120825
  Serious: No
  Sender: FDA-Public Use
  Company Number: 2012SP027676

PATIENT
  Age: 42 Year
  Sex: Female

DRUGS (3)
  1. LITHIUM [Concomitant]
  2. PAXIL [Concomitant]
  3. SAPHRIS [Suspect]
     Indication: BIPOLAR DISORDER
     Dosage: 10 MG;QD;SL
     Route: 060
     Dates: start: 20120501, end: 20120521

REACTIONS (2)
  - THROAT TIGHTNESS [None]
  - BLOOD GLUCOSE INCREASED [None]
